FAERS Safety Report 12768811 (Version 1)
Quarter: 2016Q3

REPORT INFORMATION
  Report Type: Report from Study
  Country: JP (occurrence: JP)
  Receive Date: 20160921
  Receipt Date: 20160921
  Transmission Date: 20161109
  Serious: Yes (Hospitalization, Other)
  Sender: FDA-Public Use
  Company Number: PHJP2016JP024702

PATIENT
  Age: 21 Year
  Sex: Female
  Weight: 39.9 kg

DRUGS (9)
  1. PAPILOCK MINI [Concomitant]
     Indication: SCLERITIS
     Dosage: Q.S., QD
     Route: 061
     Dates: start: 20160714
  2. ANTEBATE [Concomitant]
     Active Substance: BETAMETHASONE DIPROPIONATE
     Indication: KELOID SCAR
     Dosage: Q.S., BID
     Route: 061
     Dates: start: 20160601
  3. ACZ885 [Suspect]
     Active Substance: CANAKINUMAB
     Dosage: UNK UNK, QW4
     Route: 058
     Dates: start: 20150127
  4. BIO-THREE [Concomitant]
     Active Substance: HERBALS
     Indication: PRODUCT USED FOR UNKNOWN INDICATION
     Dosage: 3 DF, TID
     Route: 048
     Dates: start: 20140625
  5. POSTERISAN [Concomitant]
     Active Substance: LIDOCAINE
     Indication: HAEMORRHOIDS
     Dosage: Q.S., QD
     Route: 061
     Dates: start: 20150901
  6. NO TREATMENT RECEIVED [Suspect]
     Active Substance: UNSPECIFIED INGREDIENT
     Indication: PYREXIA
     Dosage: NO TREATMENT
     Route: 065
  7. FERROUS SULFATE. [Concomitant]
     Active Substance: FERROUS SULFATE
     Indication: ANAEMIA
     Dosage: 105 MG, QD
     Route: 065
  8. ACZ885 [Suspect]
     Active Substance: CANAKINUMAB
     Dosage: 150 MG, ONCE IN 8 WEEKS
     Route: 058
     Dates: start: 20150714
  9. CINAL [Concomitant]
     Active Substance: ASCORBIC ACID\CALCIUM PANTOTHENATE
     Indication: STOMATITIS
     Dosage: 200 MG, BID
     Route: 048
     Dates: start: 20150714

REACTIONS (2)
  - Pyoderma gangrenosum [Not Recovered/Not Resolved]
  - Familial mediterranean fever [Unknown]

NARRATIVE: CASE EVENT DATE: 20160818
